FAERS Safety Report 6538422-5 (Version None)
Quarter: 2010Q1

REPORT INFORMATION
  Report Type: 
  Country: None (occurrence: None)
  Receive Date: 20100114
  Receipt Date: 20090729
  Transmission Date: 20100710
  Serious: No
  Sender: FDA-Public Use
  Company Number: US-TYCO HEALTHCARE/MALLINCKRODT-T200901442

PATIENT
  Age: 74 Year
  Sex: Female

DRUGS (3)
  1. OXYCODONE HCL AND ACETAMINOPHEN [Suspect]
     Indication: PAIN
     Dosage: 1 TAB Q 3-4 HRS
     Route: 048
     Dates: start: 20090626, end: 20090729
  2. RECLAST [Concomitant]
     Indication: OSTEOPOROSIS
     Dosage: QMOS
     Route: 030
  3. TYLENOL (CAPLET) [Concomitant]
     Indication: PAIN
     Dosage: UNK
     Route: 048

REACTIONS (2)
  - URINE OUTPUT DECREASED [None]
  - VISUAL IMPAIRMENT [None]
